FAERS Safety Report 14269184 (Version 6)
Quarter: 2022Q4

REPORT INFORMATION
  Report Type: Spontaneous
  Country: IT (occurrence: IT)
  Receive Date: 20171211
  Receipt Date: 20221114
  Transmission Date: 20230113
  Serious: Yes (Death, Other)
  Sender: FDA-Public Use
  Company Number: IT-BOEHRINGERINGELHEIM-2017-BI-060627

PATIENT
  Age: 53 Year
  Sex: Male
  Weight: 100 kg

DRUGS (10)
  1. VINORELBINE [Suspect]
     Active Substance: VINORELBINE TARTRATE
     Indication: Pleural mesothelioma malignant
     Dosage: UNK
     Route: 065
     Dates: start: 201512
  2. PEMETREXED [Suspect]
     Active Substance: PEMETREXED
     Indication: Pleural mesothelioma malignant
     Dosage: 500 MILLIGRAM/SQ. METER, CYCLE
     Route: 042
     Dates: start: 201404
  3. PEMETREXED [Suspect]
     Active Substance: PEMETREXED
     Dosage: 500 MILLIGRAM/SQ. METER,CYCLE
     Route: 042
     Dates: start: 201505
  4. NINTEDANIB [Suspect]
     Active Substance: NINTEDANIB
     Indication: Pleural mesothelioma malignant
     Dosage: 200 MILLIGRAM, BID
     Route: 048
     Dates: start: 201404
  5. NINTEDANIB [Suspect]
     Active Substance: NINTEDANIB
     Dosage: 400 MG, QD (200 MG, BID)
     Route: 048
     Dates: start: 201505
  6. TRABECTEDIN [Suspect]
     Active Substance: TRABECTEDIN
     Indication: Pleural mesothelioma malignant
     Dosage: DOSE 1.1 MG/M2 IV TRABECTEDIN INFUSION IN 5%
     Route: 065
     Dates: start: 201501
  7. CISPLATIN\PEMETREXED [Suspect]
     Active Substance: CISPLATIN\PEMETREXED
     Indication: Pleural mesothelioma malignant
     Dosage: UNK
     Route: 065
     Dates: start: 201505
  8. CISPLATIN\PEMETREXED [Suspect]
     Active Substance: CISPLATIN\PEMETREXED
     Dosage: 500 MG/M2 OF PEMETREXED AND 75 MG/M2 OF
     Route: 065
     Dates: start: 201404
  9. CARBOPLATIN [Concomitant]
     Active Substance: CARBOPLATIN
     Indication: Pleural mesothelioma malignant
     Dosage: UNK
     Route: 065
  10. CISPLATIN [Concomitant]
     Active Substance: CISPLATIN
     Indication: Pleural mesothelioma malignant
     Dosage: 75 MILLIGRAM/SQ. METER, CYCLE
     Route: 042
     Dates: start: 201404

REACTIONS (4)
  - Malignant neoplasm progression [Fatal]
  - Embolism venous [Unknown]
  - Oedema peripheral [Unknown]
  - Off label use [Unknown]

NARRATIVE: CASE EVENT DATE: 20140101
